FAERS Safety Report 23061022 (Version 3)
Quarter: 2023Q4

REPORT INFORMATION
  Report Type: Spontaneous
  Country: GB (occurrence: None)
  Receive Date: 20231013
  Receipt Date: 20231212
  Transmission Date: 20240110
  Serious: Yes (Disabling, Other)
  Sender: FDA-Public Use
  Company Number: GB-ROCHE-3418478

PATIENT
  Age: 53 Year
  Sex: Female

DRUGS (3)
  1. VABYSMO [Suspect]
     Active Substance: FARICIMAB\FARICIMAB-SVOA
     Indication: Diabetic eye disease
     Dosage: 4 LOADING 4-WEEKLY FOLLOWED BY 1 INJECTION 13 WEEKS LATER
     Route: 050
     Dates: start: 20230131, end: 20230727
  2. VABYSMO [Suspect]
     Active Substance: FARICIMAB\FARICIMAB-SVOA
     Indication: Macular oedema
  3. VABYSMO [Concomitant]
     Active Substance: FARICIMAB\FARICIMAB-SVOA
     Dosage: FELLOW EYE TREATMENT
     Dates: start: 20230131, end: 20230424

REACTIONS (2)
  - Blindness [Unknown]
  - Retinal occlusive vasculitis [Unknown]

NARRATIVE: CASE EVENT DATE: 20230803
